FAERS Safety Report 15425658 (Version 2)
Quarter: 2018Q4

REPORT INFORMATION
  Report Type: Report from Study
  Country: None (occurrence: EE)
  Receive Date: 20180925
  Receipt Date: 20181113
  Transmission Date: 20190204
  Serious: Yes (Hospitalization)
  Sender: FDA-Public Use
  Company Number: EE-ABBVIE-18P-221-2488122-00

PATIENT
  Age: 65 Year
  Sex: Female
  Weight: 64.4 kg

DRUGS (16)
  1. ADALIMUMAB [Suspect]
     Active Substance: ADALIMUMAB
     Indication: RHEUMATOID ARTHRITIS
     Route: 058
     Dates: start: 20170410, end: 20180326
  2. IBUPROFEN. [Concomitant]
     Active Substance: IBUPROFEN
     Indication: LUNG INFILTRATION
     Route: 048
     Dates: start: 20180404
  3. OMEPRAZOL [Concomitant]
     Active Substance: OMEPRAZOLE
     Indication: GASTROOESOPHAGEAL REFLUX DISEASE
     Route: 048
     Dates: start: 2016
  4. PARACETAMOL [Concomitant]
     Active Substance: ACETAMINOPHEN
     Indication: NASOPHARYNGITIS
     Route: 048
     Dates: start: 20180215, end: 20180216
  5. PARACETAMOL [Concomitant]
     Active Substance: ACETAMINOPHEN
     Indication: LUNG INFILTRATION
     Route: 042
     Dates: start: 20180404
  6. CYCLOSERIN [Concomitant]
     Active Substance: CYCLOSERINE
     Indication: ANTIBIOTIC PROPHYLAXIS
     Dosage: 0.5 + 0.25 MG
     Route: 030
     Dates: start: 20180425
  7. AMIKACIN. [Concomitant]
     Active Substance: AMIKACIN
     Indication: ANTIBIOTIC PROPHYLAXIS
     Route: 030
     Dates: start: 20180425
  8. ETHAMBUTOL [Concomitant]
     Active Substance: ETHAMBUTOL HYDROCHLORIDE
     Indication: ANTIBIOTIC PROPHYLAXIS
     Route: 048
     Dates: start: 20180414, end: 20180424
  9. CERUCAL [Concomitant]
     Active Substance: METOCLOPRAMIDE HYDROCHLORIDE
     Indication: PROPHYLAXIS OF NAUSEA AND VOMITING
  10. LINESOLID [Concomitant]
     Indication: ANTIBIOTIC PROPHYLAXIS
     Route: 030
     Dates: start: 20180425
  11. CERUCAL [Concomitant]
     Active Substance: METOCLOPRAMIDE HYDROCHLORIDE
     Indication: LUNG INFILTRATION
     Route: 048
     Dates: start: 20180412
  12. MEDROL [Concomitant]
     Active Substance: METHYLPREDNISOLONE
     Indication: RHEUMATOID ARTHRITIS
     Route: 048
     Dates: start: 20180405
  13. LEVOFLOXACIN. [Concomitant]
     Active Substance: LEVOFLOXACIN
     Indication: ANTIBIOTIC PROPHYLAXIS
     Route: 030
     Dates: start: 20180425, end: 20180822
  14. ABT-494 [Suspect]
     Active Substance: UPADACITINIB
     Indication: RHEUMATOID ARTHRITIS
     Route: 048
  15. ETHAMBUTOL [Concomitant]
     Active Substance: ETHAMBUTOL HYDROCHLORIDE
     Route: 030
     Dates: start: 20180425
  16. IMIPENEM [Concomitant]
     Active Substance: IMIPENEM
     Indication: LUNG INFILTRATION
     Route: 042
     Dates: start: 20180416

REACTIONS (1)
  - Drug hypersensitivity [Not Recovered/Not Resolved]

NARRATIVE: CASE EVENT DATE: 20180827
